FAERS Safety Report 5572084-9 (Version None)
Quarter: 2007Q4

REPORT INFORMATION
  Report Type: 
  Country: None (occurrence: None)
  Receive Date: 20071221
  Receipt Date: 20071213
  Transmission Date: 20080405
  Serious: Yes (Hospitalization, Other)
  Sender: FDA-Public Use
  Company Number: US-PFIZER INC-2006081713

PATIENT
  Sex: Female
  Weight: 62.1 kg

DRUGS (3)
  1. SU-011,248 [Suspect]
     Indication: GASTROINTESTINAL STROMAL TUMOUR
     Route: 048
     Dates: start: 20050518, end: 20060629
  2. AMBIEN [Concomitant]
     Route: 048
  3. LASIX [Concomitant]
     Route: 048

REACTIONS (4)
  - BRADYCARDIA [None]
  - HEART RATE IRREGULAR [None]
  - SYNCOPE [None]
  - VENTRICULAR TACHYCARDIA [None]
